FAERS Safety Report 17797277 (Version 1)
Quarter: 2020Q2

REPORT INFORMATION
  Report Type: Spontaneous
  Country: US (occurrence: US)
  Receive Date: 20200515
  Receipt Date: 20200515
  Transmission Date: 20200714
  Serious: No
  Sender: FDA-Public Use
  Company Number: None

PATIENT
  Age: 72 Year
  Sex: Female
  Weight: 67.5 kg

DRUGS (15)
  1. PIOGLITAZONE. [Concomitant]
     Active Substance: PIOGLITAZONE
  2. ASPIRIN 81MG [Concomitant]
     Active Substance: ASPIRIN
  3. TRAJENTA [Concomitant]
     Active Substance: LINAGLIPTIN
  4. TRESIBA [Concomitant]
     Active Substance: INSULIN DEGLUDEC
  5. ACIDOPHILUS [Concomitant]
     Active Substance: LACTOBACILLUS ACIDOPHILUS
  6. PANTOPRAZOLE [Concomitant]
     Active Substance: PANTOPRAZOLE
  7. TOLTERODINE [Concomitant]
     Active Substance: TOLTERODINE
  8. VITAMIN D3 [Concomitant]
     Active Substance: CHOLECALCIFEROL
  9. TROSPIUM 20MG TABLETS [Suspect]
     Active Substance: TROSPIUM
     Indication: HYPERTONIC BLADDER
     Dosage: ?          QUANTITY:1 TABLET(S);?
     Route: 048
  10. TAGAMET [Concomitant]
     Active Substance: CIMETIDINE
  11. GLIPIZIDE. [Concomitant]
     Active Substance: GLIPIZIDE
  12. FISH OIL 1200MG [Concomitant]
  13. PRAVASTATIN. [Concomitant]
     Active Substance: PRAVASTATIN
  14. ACETAMINOPHEN AND CODEINE [Concomitant]
     Active Substance: ACETAMINOPHEN\CODEINE PHOSPHATE
  15. VITAMIN C [Concomitant]
     Active Substance: ASCORBIC ACID

REACTIONS (1)
  - Abdominal pain upper [None]

NARRATIVE: CASE EVENT DATE: 20200510
